FAERS Safety Report 11045734 (Version 3)
Quarter: 2015Q2

REPORT INFORMATION
  Report Type: Spontaneous
  Country: US (occurrence: US)
  Receive Date: 20150417
  Receipt Date: 20150623
  Transmission Date: 20150821
  Serious: Yes (Hospitalization, Other)
  Sender: FDA-Public Use
  Company Number: US-009507513-1110USA04296

PATIENT
  Sex: Female
  Weight: 63.49 kg

DRUGS (5)
  1. CALCIUM (UNSPECIFIED) [Concomitant]
     Active Substance: CALCIUM
     Indication: PROPHYLAXIS
     Dosage: 600 MG, BID
     Route: 048
     Dates: start: 1990
  2. VITAMINS (UNSPECIFIED) [Concomitant]
     Active Substance: VITAMINS
     Indication: PROPHYLAXIS
     Dosage: UNK
     Route: 048
     Dates: start: 1990
  3. VITAMIN D [Concomitant]
     Active Substance: CHOLECALCIFEROL
     Indication: PROPHYLAXIS
     Dosage: UNK
     Route: 048
     Dates: start: 1990
  4. FOSAMAX [Suspect]
     Active Substance: ALENDRONATE SODIUM
     Indication: BONE DENSITY DECREASED
     Dosage: 35 MG, QW
     Route: 048
     Dates: start: 20020524, end: 20101019
  5. ALENDRONATE SODIUM. [Suspect]
     Active Substance: ALENDRONATE SODIUM
     Indication: BONE DENSITY DECREASED
     Dosage: 35 MG, UNK
     Route: 048
     Dates: start: 20080409, end: 20110210

REACTIONS (29)
  - Intervertebral disc degeneration [Unknown]
  - Meniere^s disease [Unknown]
  - Arthritis [Unknown]
  - Carotid artery stenosis [Unknown]
  - Acute kidney injury [Unknown]
  - Hypertension [Unknown]
  - Osteopenia [Unknown]
  - Myalgia [Unknown]
  - Fall [Unknown]
  - Adverse drug reaction [Unknown]
  - Osteoarthritis [Unknown]
  - Neck pain [Unknown]
  - Hyperlipidaemia [Unknown]
  - Headache [Unknown]
  - Atypical femur fracture [Recovering/Resolving]
  - Anaemia [Unknown]
  - Intramedullary rod insertion [Recovering/Resolving]
  - Osteoporosis [Unknown]
  - Scoliosis [Unknown]
  - Myalgia [Unknown]
  - Removal of internal fixation [Unknown]
  - Sciatica [Not Recovered/Not Resolved]
  - Hypokalaemia [Unknown]
  - Fracture delayed union [Unknown]
  - Limb deformity [Not Recovered/Not Resolved]
  - Hypothyroidism [Unknown]
  - Chest pain [Unknown]
  - Back pain [Unknown]
  - Osteoarthropathy [Unknown]

NARRATIVE: CASE EVENT DATE: 20050201
